FAERS Safety Report 5232077-8 (Version None)
Quarter: 2007Q1

REPORT INFORMATION
  Report Type: 
  Country: None (occurrence: None)
  Receive Date: 20061201
  Receipt Date: 20060829
  Transmission Date: 20070707
  Serious: No
  Sender: FDA-Public Use
  Company Number: US200608006652

PATIENT
  Age: 47 Year
  Sex: Male

DRUGS (4)
  1. CYMBALTA [Suspect]
     Indication: DEPRESSION
     Dosage: 60 MG, DAILY (1/D)
     Dates: start: 20060701
  2. TYLENOL W/ CODEINE NO. 3 [Concomitant]
  3. VALIUM /NET/ (DIZAPEM) [Concomitant]
  4. LAMICTAL [Concomitant]

REACTIONS (3)
  - DIARRHOEA [None]
  - LIBIDO INCREASED [None]
  - SOMNOLENCE [None]
